FAERS Safety Report 19242493 (Version 1)
Quarter: 2021Q2

REPORT INFORMATION
  Report Type: Spontaneous
  Country: JP (occurrence: JP)
  Receive Date: 20210510
  Receipt Date: 20210510
  Transmission Date: 20210717
  Serious: Yes (Other)
  Sender: FDA-Public Use
  Company Number: JP-GLAXOSMITHKLINE-JPCH2021GSK023887

PATIENT
  Age: 59 Year
  Sex: Male

DRUGS (6)
  1. COLCHICINE. [Suspect]
     Active Substance: COLCHICINE
     Indication: CARDIAC FAILURE CHRONIC
     Dosage: 1.5 MG
  2. IBUPROFEN. [Suspect]
     Active Substance: IBUPROFEN
     Indication: CARDIAC FAILURE CHRONIC
     Dosage: 600 MG
  3. AZOSEMIDE [Suspect]
     Active Substance: AZOSEMIDE
     Indication: CARDIAC FAILURE CHRONIC
     Dosage: 15 MG
  4. COLCHICINE. [Suspect]
     Active Substance: COLCHICINE
     Indication: PERICARDITIS CONSTRICTIVE
  5. AZOSEMIDE [Suspect]
     Active Substance: AZOSEMIDE
     Indication: PERICARDITIS CONSTRICTIVE
  6. IBUPROFEN. [Suspect]
     Active Substance: IBUPROFEN
     Indication: PERICARDITIS CONSTRICTIVE

REACTIONS (2)
  - Drug ineffective [Unknown]
  - Condition aggravated [Unknown]
